FAERS Safety Report 23090769 (Version 1)
Quarter: 2023Q4

REPORT INFORMATION
  Report Type: Spontaneous
  Country: US (occurrence: None)
  Receive Date: 20231020
  Receipt Date: 20231020
  Transmission Date: 20240110
  Serious: Yes (Hospitalization, Disabling)
  Sender: FDA-Public Use
  Company Number: None

PATIENT
  Age: 75 Year
  Sex: Male
  Weight: 68 kg

DRUGS (5)
  1. ELIGARD [Suspect]
     Active Substance: LEUPROLIDE ACETATE
     Indication: Prostate cancer
     Dosage: OTHER QUANTITY : 1 INJECTION(S);?OTHER FREQUENCY : 3 MONTHS;?OTHER ROUTE : IN ABDOMEN;?
     Route: 050
     Dates: start: 20230522, end: 20230522
  2. MAGNESIOCARD [Concomitant]
  3. patnoprazol [Concomitant]
  4. ATORVASTATIN [Concomitant]
     Active Substance: ATORVASTATIN
  5. VITAMIN D [Concomitant]
     Active Substance: VITAMIN D NOS

REACTIONS (7)
  - Circulatory collapse [None]
  - Peripheral vascular disorder [None]
  - Dysstasia [None]
  - Gait inability [None]
  - Fall [None]
  - Tumour flare [None]
  - Prostatic specific antigen decreased [None]

NARRATIVE: CASE EVENT DATE: 20230528
